FAERS Safety Report 17539956 (Version 1)
Quarter: 2020Q1

REPORT INFORMATION
  Report Type: Spontaneous
  Country: DK (occurrence: DK)
  Receive Date: 20200313
  Receipt Date: 20200313
  Transmission Date: 20200409
  Serious: Yes (Other)
  Sender: FDA-Public Use
  Company Number: DK-TEVA-2020-DK-1198308

PATIENT
  Age: 34 Year
  Sex: Male

DRUGS (5)
  1. BLEOMYCIN ^BAXTER^ [Suspect]
     Active Substance: BLEOMYCIN SULFATE
     Indication: HODGKIN^S DISEASE
     Dosage: STRENGTH : 15.000 IE.
     Route: 042
     Dates: start: 20180612, end: 20180918
  2. DOXORUBICIN ^TEVA^ [Suspect]
     Active Substance: DOXORUBICIN HYDROCHLORIDE
     Indication: HODGKIN^S DISEASE
     Dosage: STRENGTH: 2 MG/ML.
     Route: 042
     Dates: start: 20180626, end: 20180918
  3. DACARBAZINE ^MEDAC^ [Suspect]
     Active Substance: DACARBAZINE
     Indication: HODGKIN^S DISEASE
     Dosage: STYRKE: UKENDT.
     Route: 042
     Dates: start: 20180612, end: 20180918
  4. VELBE [Suspect]
     Active Substance: VINBLASTINE SULFATE
     Indication: HODGKIN^S DISEASE
     Dosage: STYRKE: 10 MG.
     Route: 042
     Dates: start: 20180612, end: 20180918
  5. ONDANSETRON [Concomitant]
     Active Substance: ONDANSETRON
     Indication: NAUSEA
     Dosage: STRENGTH : 8 MG.
     Route: 048
     Dates: start: 20180710

REACTIONS (8)
  - Injection site swelling [Unknown]
  - Pain in extremity [Unknown]
  - Injection site erythema [Unknown]
  - Hypoaesthesia [Unknown]
  - Thrombophlebitis superficial [Unknown]
  - Vascular pain [Unknown]
  - Neuropathy peripheral [Unknown]
  - Musculoskeletal stiffness [Unknown]

NARRATIVE: CASE EVENT DATE: 2018
